FAERS Safety Report 21585046 (Version 1)
Quarter: 2022Q4

REPORT INFORMATION
  Report Type: Report from Study
  Country: US (occurrence: US)
  Receive Date: 20221111
  Receipt Date: 20221111
  Transmission Date: 20230112
  Serious: No
  Sender: FDA-Public Use
  Company Number: US-ABBVIE-4192647

PATIENT
  Age: 27 Year
  Sex: Female

DRUGS (3)
  1. SKYRIZI [Suspect]
     Active Substance: RISANKIZUMAB-RZAA
     Indication: Psoriasis
     Dosage: STRENGTH: 150 MG
     Route: 058
     Dates: start: 202102
  2. LATANOPROST [Concomitant]
     Active Substance: LATANOPROST
     Indication: Product used for unknown indication
     Dosage: LATANOPROST 0.005 % DROPS
  3. NICAPRIN [Concomitant]
     Indication: Product used for unknown indication
     Dosage: NICAPRIN 250-0.5MG TABLET

REACTIONS (3)
  - Hypersensitivity [Unknown]
  - Injection site pruritus [Unknown]
  - Rash papular [Unknown]

NARRATIVE: CASE EVENT DATE: 20221001
